FAERS Safety Report 9027147 (Version 1)
Quarter: 2013Q1

REPORT INFORMATION
  Report Type: Spontaneous
  Country: ES (occurrence: ES)
  Receive Date: 20130123
  Receipt Date: 20130123
  Transmission Date: 20140127
  Serious: Yes (Other)
  Sender: FDA-Public Use
  Company Number: ES-GLAXOSMITHKLINE-B0860894A

PATIENT
  Age: 50 Year
  Sex: Female

DRUGS (1)
  1. NIQUITIN [Suspect]
     Indication: EX-TOBACCO USER
     Route: 048
     Dates: start: 201212, end: 201212

REACTIONS (9)
  - Respiratory distress [Recovered/Resolved]
  - Loss of consciousness [Recovered/Resolved]
  - Hypersensitivity [Recovered/Resolved]
  - Chest pain [Recovered/Resolved]
  - Malaise [Recovered/Resolved]
  - Throat irritation [Recovered/Resolved]
  - Glossodynia [Recovered/Resolved]
  - Anxiety [Recovered/Resolved]
  - Syncope [Recovered/Resolved]
